FAERS Safety Report 25792301 (Version 2)
Quarter: 2025Q4

REPORT INFORMATION
  Report Type: Spontaneous
  Country: CA (occurrence: CA)
  Receive Date: 20250911
  Receipt Date: 20251013
  Transmission Date: 20260117
  Serious: Yes (Hospitalization)
  Sender: PFIZER
  Company Number: CA-PFIZER INC-202500170887

PATIENT
  Age: 78 Year
  Sex: Female
  Weight: 58 kg

DRUGS (3)
  1. IXIFI [Suspect]
     Active Substance: INFLIXIMAB-QBTX
     Indication: Sarcoidosis
     Dosage: 400 MG, EVERY 4 WEEKS
     Route: 042
     Dates: start: 20250606
  2. IXIFI [Suspect]
     Active Substance: INFLIXIMAB-QBTX
     Dosage: 400 MG, EVERY 4 WEEKS
     Route: 042
     Dates: start: 20250801
  3. IXIFI [Suspect]
     Active Substance: INFLIXIMAB-QBTX
     Dosage: 400 MG, 5 WEEKS, (400 MG, EVERY 4 WEEKS)
     Route: 042
     Dates: start: 20250905

REACTIONS (1)
  - Campylobacter infection [Recovered/Resolved]

NARRATIVE: CASE EVENT DATE: 20250822
